FAERS Safety Report 18937225 (Version 1)
Quarter: 2021Q1

REPORT INFORMATION
  Report Type: Spontaneous
  Country: US (occurrence: US)
  Receive Date: 20210225
  Receipt Date: 20210225
  Transmission Date: 20210420
  Serious: No
  Sender: FDA-Public Use
  Company Number: US-BEH-2021128821

PATIENT
  Sex: Female

DRUGS (1)
  1. HIZENTRA [Suspect]
     Active Substance: HUMAN IMMUNOGLOBULIN G
     Indication: ILLNESS
     Dosage: 16 GRAM, QW
     Route: 058

REACTIONS (4)
  - Migraine [Unknown]
  - Back pain [Unknown]
  - Heart rate irregular [Unknown]
  - Neck pain [Unknown]
